FAERS Safety Report 4290878-7 (Version None)
Quarter: 2004Q1

REPORT INFORMATION
  Report Type: 
  Country: None (occurrence: None)
  Receive Date: 20040209
  Receipt Date: 20040128
  Transmission Date: 20041129
  Serious: Yes (Other)
  Sender: FDA-Public Use
  Company Number: DE-JNJFOC-20040201088

PATIENT
  Sex: Male

DRUGS (4)
  1. REMICADE [Suspect]
     Indication: BEHCET'S SYNDROME
     Dosage: 300 MG, INTRAVENOUS
     Route: 042
     Dates: start: 20030101, end: 20040101
  2. INTERFERON ALFA (INTERFERON ALFA) [Suspect]
     Indication: HEPATITIS
     Dosage: ORAL
     Route: 048
     Dates: end: 20030101
  3. METHOTREXATE [Concomitant]
  4. FOLIC ACID [Concomitant]

REACTIONS (2)
  - PYREXIA [None]
  - SPERM ANALYSIS ABNORMAL [None]
